FAERS Safety Report 16724914 (Version 1)
Quarter: 2019Q3

REPORT INFORMATION
  Report Type: Spontaneous
  Country: FR (occurrence: FR)
  Receive Date: 20190821
  Receipt Date: 20190821
  Transmission Date: 20191005
  Serious: Yes (Other)
  Sender: FDA-Public Use
  Company Number: FR-MYLANLABS-2019M1077550

PATIENT
  Age: 61 Year
  Sex: Female
  Weight: 98 kg

DRUGS (3)
  1. IBRANCE [Interacting]
     Active Substance: PALBOCICLIB
     Indication: BREAST CANCER
     Dosage: 125 MILLIGRAM, QD (125 MG, DAILY)
     Route: 048
     Dates: start: 20181226
  2. LETROZOLE. [Concomitant]
     Active Substance: LETROZOLE
     Indication: BREAST CANCER
     Dosage: 2.5 MILLIGRAM, QD (2.5 MG, 1X/DAY)
     Route: 048
     Dates: start: 20181226
  3. RAMIPRIL. [Suspect]
     Active Substance: RAMIPRIL
     Indication: HYPERTENSION
     Dosage: 1.25 MILLIGRAM, QD (1.25 MG, 1X/DAY)
     Route: 048
     Dates: start: 201710

REACTIONS (3)
  - Hepatocellular injury [Recovering/Resolving]
  - Drug interaction [Recovering/Resolving]
  - Jaundice cholestatic [Recovering/Resolving]

NARRATIVE: CASE EVENT DATE: 20190111
